FAERS Safety Report 14012658 (Version 1)
Quarter: 2017Q3

REPORT INFORMATION
  Report Type: Spontaneous
  Country: US (occurrence: US)
  Receive Date: 20170926
  Receipt Date: 20170926
  Transmission Date: 20171128
  Serious: No
  Sender: FDA-Public Use
  Company Number: US-DEPOMED, INC.-US-2017DEP000538

PATIENT

DRUGS (6)
  1. CELEXA [Concomitant]
     Active Substance: CITALOPRAM HYDROBROMIDE
     Indication: PAIN
  2. CELEBREX [Concomitant]
     Active Substance: CELECOXIB
     Indication: PAIN
     Dosage: 200 MG, QD
     Route: 048
  3. CELEXA [Concomitant]
     Active Substance: CITALOPRAM HYDROBROMIDE
     Indication: DEPRESSION
     Dosage: 60 MG, QD
     Route: 048
     Dates: start: 2016
  4. GRALISE [Suspect]
     Active Substance: GABAPENTIN
     Indication: NEURALGIA
     Dosage: 300 MG, QD (FOLLOWING DIRECTIONS PER SAMPLE PACK INSTRUCTIONS)
     Route: 048
     Dates: start: 20170303
  5. FENTANYL. [Concomitant]
     Active Substance: FENTANYL
     Indication: PAIN
     Dosage: 125 ?G, EVERY 2 DAYS
     Dates: start: 2011
  6. SUBSYS [Concomitant]
     Active Substance: FENTANYL
     Indication: PAIN
     Dosage: 125 ?G, EVERY 4 HOURS
     Route: 060
     Dates: start: 2017

REACTIONS (8)
  - Malaise [Not Recovered/Not Resolved]
  - Arthralgia [Not Recovered/Not Resolved]
  - Somnolence [Not Recovered/Not Resolved]
  - Diarrhoea [Not Recovered/Not Resolved]
  - Product use in unapproved indication [Not Recovered/Not Resolved]
  - Fatigue [Not Recovered/Not Resolved]
  - Pain in extremity [Not Recovered/Not Resolved]
  - Myalgia [Not Recovered/Not Resolved]

NARRATIVE: CASE EVENT DATE: 20170303
